FAERS Safety Report 10361362 (Version 4)
Quarter: 2014Q3

REPORT INFORMATION
  Report Type: Spontaneous
  Country: US (occurrence: US)
  Receive Date: 20140805
  Receipt Date: 20140819
  Transmission Date: 20150326
  Serious: Yes (Other)
  Sender: FDA-Public Use
  Company Number: US-UCBSA-106443

PATIENT
  Sex: Female
  Weight: 71.36 kg

DRUGS (6)
  1. METHOTREXATE [Suspect]
     Active Substance: METHOTREXATE
     Dosage: DOSE UNKNOWN
  2. FOLIC ACID. [Concomitant]
     Active Substance: FOLIC ACID
     Indication: NERVOUS SYSTEM DISORDER
     Dosage: 2 MG 1 AM
  3. ZOFRAN [Concomitant]
     Active Substance: ONDANSETRON HYDROCHLORIDE
     Indication: NAUSEA
     Dosage: 3-4 AS NEEDED DAILY
  4. BAYER ASPIRIN [Concomitant]
     Active Substance: ASPIRIN
     Indication: CARDIAC DISORDER
     Dosage: DOSE: 1; 9 PM
  5. PANTOPRAZOLE [Concomitant]
     Active Substance: PANTOPRAZOLE SODIUM
     Indication: NAUSEA
     Dosage: DOSE : 2 BEFORE BREAKFAST
  6. CIMZIA [Suspect]
     Active Substance: CERTOLIZUMAB PEGOL
     Indication: CROHN^S DISEASE
     Dosage: 200MG (UNKNOWN FREQUENCY); NUMBER OF DOSES: 2

REACTIONS (4)
  - Crohn^s disease [Unknown]
  - Lymphoma [Unknown]
  - Aphonia [Not Recovered/Not Resolved]
  - Lymph gland infection [Unknown]
